FAERS Safety Report 21789525 (Version 1)
Quarter: 2022Q4

REPORT INFORMATION
  Report Type: Spontaneous
  Country: US (occurrence: None)
  Receive Date: 20221227
  Receipt Date: 20221227
  Transmission Date: 20230113
  Serious: No
  Sender: FDA-Public Use
  Company Number: None

PATIENT

DRUGS (2)
  1. ETOPOSIDE [Suspect]
     Active Substance: ETOPOSIDE
     Dosage: OTHER ROUTE : INJECTION;?
     Route: 050
  2. CARBOPLATIN [Suspect]
     Active Substance: CARBOPLATIN
     Route: 042

REACTIONS (1)
  - Product packaging confusion [None]
